FAERS Safety Report 4423079-X (Version None)
Quarter: 2004Q3

REPORT INFORMATION
  Report Type: 
  Country: None (occurrence: None)
  Receive Date: 20040806
  Receipt Date: 20040726
  Transmission Date: 20050211
  Serious: Yes (Hospitalization)
  Sender: FDA-Public Use
  Company Number: FR-JNJFOC-20040404955

PATIENT
  Age: 53 Year
  Sex: Male
  Weight: 118 kg

DRUGS (5)
  1. REMICADE [Suspect]
     Indication: RHEUMATOID ARTHRITIS
     Dosage: 360 MG INTRAVENOUS
     Route: 042
     Dates: start: 20040330
  2. PREDNISONE TAB [Concomitant]
  3. SPECIAFOLDINE (TABLETS)(FOLIC ACID) [Concomitant]
  4. METHOTREXATE [Concomitant]
  5. NEXIUM [Concomitant]

REACTIONS (12)
  - BLOOD PH DECREASED [None]
  - C-REACTIVE PROTEIN INCREASED [None]
  - CHILLS [None]
  - DYSPNOEA EXERTIONAL [None]
  - INFLAMMATION [None]
  - LEUKOCYTOSIS [None]
  - LUNG CREPITATION [None]
  - LUNG DISORDER [None]
  - OXYGEN SATURATION DECREASED [None]
  - PCO2 INCREASED [None]
  - PO2 DECREASED [None]
  - PYREXIA [None]
